FAERS Safety Report 6793177-4 (Version None)
Quarter: 2010Q2

REPORT INFORMATION
  Report Type: 
  Country: None (occurrence: None)
  Receive Date: 20100624
  Receipt Date: 20090707
  Transmission Date: 20101027
  Serious: Yes (Other)
  Sender: FDA-Public Use
  Company Number: US-MYLANLABS-2009S1012058

PATIENT
  Age: 30 Year
  Sex: Male

DRUGS (7)
  1. CLOZAPINE [Suspect]
     Route: 048
     Dates: end: 20090601
  2. ZYPREXA [Concomitant]
  3. DEPAKOTE [Concomitant]
  4. COGENTIN [Concomitant]
  5. LISINOPRIL [Concomitant]
  6. ATENOLOL [Concomitant]
  7. LEVOTHYROXINE [Concomitant]

REACTIONS (1)
  - GRANULOCYTOPENIA [None]
